FAERS Safety Report 8266273-2 (Version None)
Quarter: 2012Q1

REPORT INFORMATION
  Report Type: 
  Country: None (occurrence: None)
  Receive Date: 20120327
  Receipt Date: 20100423
  Transmission Date: 20120608
  Serious: Yes (Hospitalization)
  Sender: FDA-Public Use
  Company Number: PHHY2010US26428

PATIENT
  Sex: Female

DRUGS (1)
  1. GLEEVEC [Suspect]
     Dates: start: 20100201

REACTIONS (1)
  - HEART RATE INCREASED [None]
